FAERS Safety Report 15841433 (Version 9)
Quarter: 2024Q2

REPORT INFORMATION
  Report Type: Report from Study
  Country: US (occurrence: US)
  Receive Date: 20190118
  Receipt Date: 20240620
  Transmission Date: 20240716
  Serious: Yes (Other)
  Sender: FDA-Public Use
  Company Number: US-ROCHE-2153814

PATIENT
  Age: 47 Year
  Sex: Female
  Weight: 72.57 kg

DRUGS (29)
  1. OCREVUS [Suspect]
     Active Substance: OCRELIZUMAB
     Indication: Primary progressive multiple sclerosis
     Dosage: 300 MG IN EVERY TWO WEEKS (TWO DOSE) THEN 600 MG EVERY 6 MONTHS?DATE OF TREATMENT: 06/JUL/2018, 17/J
     Route: 042
     Dates: start: 20180706
  2. OCREVUS [Suspect]
     Active Substance: OCRELIZUMAB
     Route: 065
     Dates: start: 20180717
  3. OCREVUS [Suspect]
     Active Substance: OCRELIZUMAB
     Route: 042
  4. OCREVUS [Suspect]
     Active Substance: OCRELIZUMAB
     Route: 065
     Dates: start: 20180706
  5. BENADRYL [Concomitant]
     Active Substance: DIPHENHYDRAMINE HYDROCHLORIDE
     Dosage: ONGOING: UNKNOWN
     Dates: start: 20180706
  6. LYRICA [Concomitant]
     Active Substance: PREGABALIN
  7. TRAMADOL [Concomitant]
     Active Substance: TRAMADOL\TRAMADOL HYDROCHLORIDE
  8. ADDERALL [Concomitant]
     Active Substance: AMPHETAMINE ASPARTATE\AMPHETAMINE SULFATE\DEXTROAMPHETAMINE SACCHARATE\DEXTROAMPHETAMINE SULFATE
  9. CHLORHEXIDINE [Concomitant]
     Active Substance: CHLORHEXIDINE\CHLORHEXIDINE GLUCONATE
  10. HYDROCODONE [Concomitant]
     Active Substance: HYDROCODONE
  11. VITAMIN D3 [Concomitant]
     Active Substance: CHOLECALCIFEROL
  12. LIDOCAINE VISCOUS [Concomitant]
     Active Substance: LIDOCAINE HYDROCHLORIDE
  13. DULOXETINE HYDROCHLORIDE [Concomitant]
     Active Substance: DULOXETINE HYDROCHLORIDE
  14. VYVANSE [Concomitant]
     Active Substance: LISDEXAMFETAMINE DIMESYLATE
  15. OXCARBAZEPINE [Concomitant]
     Active Substance: OXCARBAZEPINE
  16. LISINOPRIL [Concomitant]
     Active Substance: LISINOPRIL
  17. IBUPROFEN [Concomitant]
     Active Substance: IBUPROFEN
  18. TOPIRAMATE [Concomitant]
     Active Substance: TOPIRAMATE
  19. ELETRIPTAN [Concomitant]
     Active Substance: ELETRIPTAN
  20. LIRAGLUTIDE [Concomitant]
     Active Substance: LIRAGLUTIDE
  21. CARIPRAZINE [Concomitant]
     Active Substance: CARIPRAZINE
  22. DIAMOX SEQUELS [Concomitant]
     Active Substance: ACETAZOLAMIDE
  23. BACLOFEN [Concomitant]
     Active Substance: BACLOFEN
  24. TRILEPTAL [Concomitant]
     Active Substance: OXCARBAZEPINE
  25. CYMBALTA [Concomitant]
     Active Substance: DULOXETINE HYDROCHLORIDE
  26. CYANOCOBALAMIN [Concomitant]
     Active Substance: CYANOCOBALAMIN
  27. GAMMAGARD [Concomitant]
     Active Substance: HUMAN IMMUNOGLOBULIN G
  28. NYSTATIN [Concomitant]
     Active Substance: NYSTATIN
  29. VENOFER [Concomitant]
     Active Substance: IRON SUCROSE

REACTIONS (31)
  - Ageusia [Unknown]
  - Neuralgia [Not Recovered/Not Resolved]
  - Cough [Unknown]
  - Sensitive skin [Unknown]
  - Sciatica [Unknown]
  - Hypoaesthesia [Not Recovered/Not Resolved]
  - Drug hypersensitivity [Unknown]
  - Fatigue [Not Recovered/Not Resolved]
  - Oral discomfort [Not Recovered/Not Resolved]
  - Intracranial pressure increased [Unknown]
  - Blood immunoglobulin G decreased [Unknown]
  - Depressed mood [Unknown]
  - Infection [Unknown]
  - Cheilitis [Unknown]
  - Pain [Unknown]
  - Fibromyalgia [Unknown]
  - Cranial nerve disorder [Unknown]
  - Iron deficiency [Unknown]
  - Visual impairment [Unknown]
  - Hypogammaglobulinaemia [Unknown]
  - Vitamin B12 deficiency [Unknown]
  - Optic neuritis [Unknown]
  - Walking aid user [Unknown]
  - Limb discomfort [Unknown]
  - Memory impairment [Unknown]
  - Aphonia [Not Recovered/Not Resolved]
  - Dyspnoea [Recovered/Resolved]
  - Feeling hot [Not Recovered/Not Resolved]
  - Feeling cold [Not Recovered/Not Resolved]
  - Glossodynia [Not Recovered/Not Resolved]
  - Hypoaesthesia [Not Recovered/Not Resolved]

NARRATIVE: CASE EVENT DATE: 20240101
